FAERS Safety Report 9868854 (Version 2)
Quarter: 2014Q4

REPORT INFORMATION
  Report Type: Report from Study
  Country: JP (occurrence: JP)
  Receive Date: 20140204
  Receipt Date: 20141202
  Transmission Date: 20150529
  Serious: Yes (Death, Life-Threatening, Hospitalization, Other)
  Sender: FDA-Public Use
  Company Number: JP-GILEAD-2014-0093534

PATIENT
  Age: 67 Year
  Sex: Female
  Weight: 42 kg

DRUGS (9)
  1. TAKEPRON [Concomitant]
     Active Substance: LANSOPRAZOLE
     Indication: PROPHYLAXIS AGAINST GASTROINTESTINAL ULCER
     Route: 048
     Dates: start: 20110615, end: 20121016
  2. AMBRISENTAN [Suspect]
     Active Substance: AMBRISENTAN
     Indication: SCLERODERMA
     Dosage: 5 MG, QD
     Route: 048
     Dates: start: 20110616, end: 20110721
  3. REVATIO [Concomitant]
     Active Substance: SILDENAFIL CITRATE
     Indication: PULMONARY ARTERIAL HYPERTENSION
     Dosage: 60 MG, QD
     Route: 048
     Dates: start: 20110819, end: 20121016
  4. GASCON [Concomitant]
     Active Substance: DIMETHICONE
     Indication: DYSCHEZIA
     Route: 048
     Dates: end: 20121016
  5. AMBRISENTAN [Suspect]
     Active Substance: AMBRISENTAN
     Dosage: 7.5 MG, QD
     Route: 048
     Dates: start: 20110722, end: 20110801
  6. AMBRISENTAN [Suspect]
     Active Substance: AMBRISENTAN
     Indication: PULMONARY ARTERIAL HYPERTENSION
     Dosage: 10 MG, QD
     Route: 048
     Dates: start: 20110802, end: 20121016
  7. WARFARIN [Suspect]
     Active Substance: WARFARIN
     Indication: ATRIAL THROMBOSIS
     Route: 048
     Dates: start: 20110615, end: 20111023
  8. HUMAN SERUM ALBUMIN [Concomitant]
     Indication: HEPATIC FAILURE
     Route: 042
     Dates: start: 20121013, end: 20121015
  9. KAYTWO [Concomitant]
     Active Substance: UNSPECIFIED INGREDIENT
     Indication: HEPATIC FAILURE
     Route: 042
     Dates: start: 20121015, end: 20121016

REACTIONS (11)
  - Hepatic cirrhosis [Fatal]
  - Biliary cirrhosis primary [Fatal]
  - Hepatic failure [Fatal]
  - Infection [Fatal]
  - CREST syndrome [Fatal]
  - Ascites [Fatal]
  - Oedema [Fatal]
  - Pulmonary oedema [Fatal]
  - Platelet count decreased [Not Recovered/Not Resolved]
  - Cor pulmonale [Fatal]
  - Anaemia [Unknown]

NARRATIVE: CASE EVENT DATE: 20110819
